FAERS Safety Report 5089904-7 (Version None)
Quarter: 2006Q3

REPORT INFORMATION
  Report Type: 
  Country: None (occurrence: None)
  Receive Date: 20060823
  Receipt Date: 20060811
  Transmission Date: 20061208
  Serious: Yes (Other)
  Sender: FDA-Public Use
  Company Number: 2006-BP-09366RO

PATIENT
  Age: 44 Year
  Sex: Male

DRUGS (1)
  1. COCAINE HCL TOPICAL SOLUTION, 4% (COCAINE) [Suspect]
     Indication: ANAESTHESIA
     Dosage: 1% X1 DOSE (SEE TEXT), TO
     Route: 061

REACTIONS (1)
  - MYOCARDIAL ISCHAEMIA [None]
